FAERS Safety Report 8512276-X (Version None)
Quarter: 2012Q3

REPORT INFORMATION
  Report Type: 
  Country: None (occurrence: None)
  Receive Date: 20120716
  Receipt Date: 20120711
  Transmission Date: 20120928
  Serious: Yes (Hospitalization)
  Sender: FDA-Public Use
  Company Number: CA-ROCHE-1087475

PATIENT
  Sex: Female
  Weight: 78.088 kg

DRUGS (10)
  1. PREVACID [Concomitant]
  2. METHOTREXATE [Concomitant]
  3. ACETAMINOPHEN [Concomitant]
  4. MABTHERA [Suspect]
     Indication: RHEUMATOID ARTHRITIS
     Route: 042
     Dates: start: 20090925
  5. METFORMIN HYDROCHLORIDE [Concomitant]
  6. CYMBALTA [Concomitant]
  7. AVAPRO [Concomitant]
  8. ACTONEL [Concomitant]
  9. HYDROCORTISONE [Concomitant]
  10. FOLIC ACID [Concomitant]

REACTIONS (1)
  - THROMBOSIS [None]
